FAERS Safety Report 16419613 (Version 1)
Quarter: 2019Q2

REPORT INFORMATION
  Report Type: Spontaneous
  Country: GB (occurrence: GB)
  Receive Date: 20190612
  Receipt Date: 20190612
  Transmission Date: 20190711
  Serious: Yes (Death, Other)
  Sender: FDA-Public Use
  Company Number: GB-SAMSUNG BIOEPIS-SB-2019-13967

PATIENT
  Age: 47 Year
  Sex: Female
  Weight: 70 kg

DRUGS (3)
  1. INFLIXIMAB [Suspect]
     Active Substance: INFLIXIMAB
     Indication: CROHN^S DISEASE
     Route: 065
     Dates: start: 20160428, end: 20170511
  2. MESALAZINE [Suspect]
     Active Substance: MESALAMINE
     Indication: CROHN^S DISEASE
     Route: 065
     Dates: start: 20141104, end: 20170727
  3. AZATHIOPRINE. [Suspect]
     Active Substance: AZATHIOPRINE
     Indication: CROHN^S DISEASE
     Route: 048
     Dates: start: 20160413, end: 20170728

REACTIONS (3)
  - Product use issue [Unknown]
  - Large intestinal stenosis [Unknown]
  - Malignant melanoma [Fatal]

NARRATIVE: CASE EVENT DATE: 201707
